FAERS Safety Report 24128826 (Version 2)
Quarter: 2024Q3

REPORT INFORMATION
  Report Type: Spontaneous
  Country: US (occurrence: US)
  Receive Date: 20240723
  Receipt Date: 20240726
  Transmission Date: 20241016
  Serious: Yes (Hospitalization)
  Sender: BAUSCH AND LOMB
  Company Number: US-BAUSCH-BL-2024-011247

PATIENT
  Age: 47 Year
  Sex: Male

DRUGS (1)
  1. BUPROPION [Suspect]
     Active Substance: BUPROPION
     Indication: Depression
     Dosage: BUPROPION EXTENDED-RELEASE
     Route: 065

REACTIONS (2)
  - Pain [Recovered/Resolved]
  - Chest pain [Recovered/Resolved]
